FAERS Safety Report 10811686 (Version 1)
Quarter: 2015Q1

REPORT INFORMATION
  Report Type: Report from Study
  Country: US (occurrence: US)
  Receive Date: 20150217
  Receipt Date: 20150217
  Transmission Date: 20150721
  Serious: No
  Sender: FDA-Public Use
  Company Number: US-ABBVIE-14K-163-1226627-00

PATIENT
  Age: 23 Year
  Sex: Male

DRUGS (4)
  1. SERTRALINE [Concomitant]
     Active Substance: SERTRALINE HYDROCHLORIDE
     Indication: PRODUCT USED FOR UNKNOWN INDICATION
  2. HUMIRA [Suspect]
     Active Substance: ADALIMUMAB
     Indication: CROHN^S DISEASE
     Dosage: LOADING DOSE
     Dates: start: 20140320, end: 20140320
  3. HUMIRA [Suspect]
     Active Substance: ADALIMUMAB
     Dosage: SECOND LOADING DOSE
     Dates: start: 20140403, end: 20140403
  4. HUMIRA [Suspect]
     Active Substance: ADALIMUMAB

REACTIONS (9)
  - Oropharyngeal pain [Recovered/Resolved]
  - Body temperature fluctuation [Not Recovered/Not Resolved]
  - Activities of daily living impaired [Not Recovered/Not Resolved]
  - Cough [Recovered/Resolved]
  - Middle insomnia [Not Recovered/Not Resolved]
  - Sinus congestion [Recovered/Resolved]
  - Unevaluable event [Unknown]
  - Poor quality sleep [Not Recovered/Not Resolved]
  - Paranasal sinus hypersecretion [Recovered/Resolved]

NARRATIVE: CASE EVENT DATE: 201403
